FAERS Safety Report 5447732-4 (Version None)
Quarter: 2007Q3

REPORT INFORMATION
  Report Type: 
  Country: None (occurrence: None)
  Receive Date: 20070910
  Receipt Date: 20070829
  Transmission Date: 20080115
  Serious: Yes (Hospitalization, Other)
  Sender: FDA-Public Use
  Company Number: DK-ELI_LILLY_AND_COMPANY-DK200707000898

PATIENT
  Age: 66 Year
  Sex: Female

DRUGS (8)
  1. FORTEO [Suspect]
     Indication: OSTEOPOROSIS
     Dosage: 20 UG, DAILY (1/D)
     Route: 058
     Dates: start: 20050903, end: 20070303
  2. FURIX [Concomitant]
     Dosage: 120 MG, DAILY (1/D)
     Route: 048
  3. NEXIUM [Concomitant]
     Dosage: 40 MG, DAILY (1/D)
     Route: 048
  4. APURIN [Concomitant]
     Dosage: 100 MG, DAILY (1/D)
     Route: 048
  5. ZARATOR [Concomitant]
     Dosage: 40 MG, DAILY (1/D)
     Route: 048
  6. VOLTAREN                                /SCH/ [Concomitant]
     Dosage: 100 MG, DAILY (1/D)
     Route: 048
  7. OMEGA-3 TRIGLYCERIDES [Concomitant]
     Dosage: 2 D/F, DAILY (1/D)
     Route: 048
  8. SERETIDE [Concomitant]
     Dosage: 1 D/F, 2/D
     Route: 055

REACTIONS (2)
  - BREAST CANCER [None]
  - METASTASES TO LYMPH NODES [None]
